FAERS Safety Report 19273752 (Version 1)
Quarter: 2021Q2

REPORT INFORMATION
  Report Type: Spontaneous
  Country: US (occurrence: US)
  Receive Date: 20210519
  Receipt Date: 20210519
  Transmission Date: 20210717
  Serious: Yes (Hospitalization)
  Sender: FDA-Public Use
  Company Number: None

PATIENT
  Age: 63 Year
  Sex: Female
  Weight: 71.8 kg

DRUGS (14)
  1. BABY ASPIRIN [Concomitant]
     Active Substance: ASPIRIN
  2. ATORVASTATIN [Concomitant]
     Active Substance: ATORVASTATIN
  3. METFORMIN [Concomitant]
     Active Substance: METFORMIN HYDROCHLORIDE
  4. TAXOTERE [Suspect]
     Active Substance: DOCETAXEL
     Dates: end: 20210507
  5. CLOPIDOGREL [Concomitant]
     Active Substance: CLOPIDOGREL BISULFATE
  6. FERROUS GLUCONATE [Concomitant]
     Active Substance: FERROUS GLUCONATE
  7. LOSARTEN [Concomitant]
     Active Substance: LOSARTAN
  8. TRULICITY [Concomitant]
     Active Substance: DULAGLUTIDE
  9. PANTOPRAZOLE [Concomitant]
     Active Substance: PANTOPRAZOLE
  10. VOLTAREN [Concomitant]
     Active Substance: DICLOFENAC SODIUM
  11. AMLODIPINE [Suspect]
     Active Substance: AMLODIPINE BESYLATE
  12. VITAMIN C [Concomitant]
     Active Substance: ASCORBIC ACID
  13. PERTUZUMAB. [Suspect]
     Active Substance: PERTUZUMAB
     Dates: end: 20210507
  14. HERCEPTIN [Suspect]
     Active Substance: TRASTUZUMAB
     Dates: end: 20210507

REACTIONS (5)
  - Diarrhoea [None]
  - Liver injury [None]
  - Leukocytosis [None]
  - Colitis [None]
  - Dehydration [None]

NARRATIVE: CASE EVENT DATE: 20210515
